FAERS Safety Report 6157707-8 (Version None)
Quarter: 2009Q2

REPORT INFORMATION
  Report Type: 
  Country: None (occurrence: None)
  Receive Date: 20090414
  Receipt Date: 20081103
  Transmission Date: 20091009
  Serious: Yes (Death)
  Sender: FDA-Public Use
  Company Number: HCDA20080004

PATIENT
  Age: 61 Year
  Sex: Female

DRUGS (5)
  1. ACETAMINOPHEN AND HYDROCODONE BITARTRATE [Suspect]
  2. PROPOXYPHENE HCL CAP [Suspect]
  3. PAROXETINE HCL [Suspect]
  4. CAFFEINE [Suspect]
  5. NICOTINE [Suspect]

REACTIONS (9)
  - ABNORMAL BEHAVIOUR [None]
  - ACCIDENTAL OVERDOSE [None]
  - BRAIN HERNIATION [None]
  - BRAIN OEDEMA [None]
  - CEREBRAL HAEMORRHAGE [None]
  - DRUG INTERACTION [None]
  - DRUG TOXICITY [None]
  - GLIOBLASTOMA MULTIFORME [None]
  - SELF-MEDICATION [None]
